FAERS Safety Report 4618068-6 (Version None)
Quarter: 2005Q1

REPORT INFORMATION
  Report Type: 
  Country: None (occurrence: None)
  Receive Date: 20050322
  Receipt Date: 20050308
  Transmission Date: 20050727
  Serious: Yes (Other)
  Sender: FDA-Public Use
  Company Number: 2005010577

PATIENT
  Age: 29 Year
  Sex: Male

DRUGS (5)
  1. VIAGRA [Suspect]
     Indication: PULMONARY HYPERTENSION
     Dosage: 150 MG (50 MG, 3 IN 1 D), ORAL
     Route: 048
     Dates: start: 20040601, end: 20041220
  2. ALDACTONE [Suspect]
     Indication: OEDEMA PERIPHERAL
     Dosage: ORAL
     Route: 048
     Dates: start: 20040101
  3. WARFARIN SODIUM [Concomitant]
  4. CARVEDILOL [Concomitant]
  5. CLONAZEPAM [Concomitant]

REACTIONS (13)
  - BRAIN NATRIURETIC PEPTIDE INCREASED [None]
  - DIARRHOEA [None]
  - FATIGUE [None]
  - HAEMODYNAMIC TEST ABNORMAL [None]
  - HEADACHE [None]
  - LYMPHADENOPATHY [None]
  - OEDEMA PERIPHERAL [None]
  - OFF LABEL USE [None]
  - PALPITATIONS [None]
  - PERCUSSION TEST ABNORMAL [None]
  - SKIN LESION [None]
  - TACHYCARDIA [None]
  - WEIGHT DECREASED [None]
